FAERS Safety Report 9281654 (Version 1)
Quarter: 2013Q2

REPORT INFORMATION
  Report Type: Spontaneous
  Country: US (occurrence: US)
  Receive Date: 20130509
  Receipt Date: 20130509
  Transmission Date: 20140414
  Serious: Yes (Other)
  Sender: FDA-Public Use
  Company Number: US-MYLANLABS-2013S1009567

PATIENT
  Sex: 0

DRUGS (2)
  1. PROPRANOLOL [Suspect]
     Indication: PHACES SYNDROME
     Dosage: 1.0 MG/KG/D DIVIDED 3X DAILY
     Route: 048
  2. PREDNISOLONE [Concomitant]
     Indication: PHACES SYNDROME
     Dosage: 2 MG/KG/D
     Route: 048

REACTIONS (5)
  - Skin ulcer [Unknown]
  - Condition aggravated [Unknown]
  - Skin ulcer [Recovered/Resolved]
  - Skin ulcer [Unknown]
  - Ear injury [Unknown]
